FAERS Safety Report 9919562 (Version 2)
Quarter: 2014Q1

REPORT INFORMATION
  Report Type: Spontaneous
  Country: US (occurrence: US)
  Receive Date: 20140224
  Receipt Date: 20140224
  Transmission Date: 20141002
  Serious: Yes (Hospitalization)
  Sender: FDA-Public Use
  Company Number: US-PFIZER INC-2014035469

PATIENT
  Age: 56 Year
  Sex: Female

DRUGS (1)
  1. RAPAMUNE [Suspect]
     Indication: PROPHYLAXIS AGAINST TRANSPLANT REJECTION
     Dosage: 4- 1MG TABLETS DAILY
     Dates: start: 20110316

REACTIONS (1)
  - Myocardial infarction [Unknown]
